FAERS Safety Report 21021000 (Version 1)
Quarter: 2022Q2

REPORT INFORMATION
  Report Type: Spontaneous
  Country: US (occurrence: US)
  Receive Date: 20220629
  Receipt Date: 20220629
  Transmission Date: 20220721
  Serious: Yes (Hospitalization, Other)
  Sender: FDA-Public Use
  Company Number: US-BRISTOL-MYERS SQUIBB COMPANY-BMS-2022-038390

PATIENT
  Age: 76 Year
  Sex: Male

DRUGS (1)
  1. YERVOY [Suspect]
     Active Substance: IPILIMUMAB
     Indication: Metastatic malignant melanoma
     Dosage: UNAVAILABLE
     Route: 042
     Dates: start: 2021

REACTIONS (6)
  - Renal disorder [Unknown]
  - Diarrhoea [Unknown]
  - Joint swelling [Unknown]
  - Decreased appetite [Unknown]
  - Urinary retention [Unknown]
  - Off label use [Unknown]
